FAERS Safety Report 6189280-2 (Version None)
Quarter: 2009Q2

REPORT INFORMATION
  Report Type: 
  Country: None (occurrence: None)
  Receive Date: 20090512
  Receipt Date: 20090506
  Transmission Date: 20091009
  Serious: Yes (Life-Threatening, Hospitalization, Other)
  Sender: FDA-Public Use
  Company Number: 2007SP024604

PATIENT
  Age: 54 Year
  Sex: Male
  Weight: 87.9978 kg

DRUGS (8)
  1. PEG-INTRON [Suspect]
     Indication: HEPATITIS C
     Dosage: 150 MCG; QW; SC
     Route: 058
     Dates: start: 20071005, end: 20071203
  2. TARIBAVIRIN [Suspect]
     Indication: HEPATITIS C
     Dosage: 2800 MG; QD;, 2200 MG; QD;
     Dates: start: 20071005, end: 20071127
  3. TARIBAVIRIN [Suspect]
     Indication: HEPATITIS C
     Dosage: 2800 MG; QD;, 2200 MG; QD;
     Dates: start: 20071128, end: 20071203
  4. CLONAZEPAM [Concomitant]
  5. MOTRIN [Concomitant]
  6. COMPAZINE [Concomitant]
  7. PREVACID [Concomitant]
  8. ZOFRAN [Concomitant]

REACTIONS (22)
  - ACUTE RESPIRATORY DISTRESS SYNDROME [None]
  - ASPIRATION [None]
  - BARRETT'S OESOPHAGUS [None]
  - BODY TEMPERATURE INCREASED [None]
  - CANDIDIASIS [None]
  - CONVULSION [None]
  - DEHYDRATION [None]
  - DIARRHOEA [None]
  - ELECTROLYTE IMBALANCE [None]
  - ENCEPHALITIS HERPES [None]
  - GASTROOESOPHAGEAL REFLUX DISEASE [None]
  - HYPOTENSION [None]
  - METABOLIC ENCEPHALOPATHY [None]
  - PNEUMONIA [None]
  - SEPSIS [None]
  - SMALL INTESTINAL OBSTRUCTION [None]
  - STATUS EPILEPTICUS [None]
  - TACHYCARDIA [None]
  - TREMOR [None]
  - ULCER [None]
  - UNRESPONSIVE TO STIMULI [None]
  - UPPER GASTROINTESTINAL HAEMORRHAGE [None]
